FAERS Safety Report 9182046 (Version 1)
Quarter: 2013Q1

REPORT INFORMATION
  Report Type: Spontaneous
  Country: US (occurrence: None)
  Receive Date: 20130321
  Receipt Date: 20130321
  Transmission Date: 20140127
  Serious: No
  Sender: FDA-Public Use
  Company Number: None

PATIENT
  Sex: Male

DRUGS (2)
  1. LAMOTRIGINE 200 MG TABLETS [Suspect]
     Indication: EPILEPSY
     Route: 048
     Dates: start: 2006
  2. LEVETIRACETAM [Suspect]
     Route: 048
     Dates: start: 2006

REACTIONS (3)
  - Status epilepticus [None]
  - Convulsion [None]
  - Product substitution issue [None]
